FAERS Safety Report 7004668-5 (Version None)
Quarter: 2010Q3

REPORT INFORMATION
  Report Type: 
  Country: None (occurrence: None)
  Receive Date: 20100921
  Receipt Date: 20100907
  Transmission Date: 20110219
  Serious: Yes (Hospitalization, Other)
  Sender: FDA-Public Use
  Company Number: GB-RANBAXY-2010R1-38175

PATIENT

DRUGS (20)
  1. ARIPIPRAZOLE [Suspect]
     Indication: PRODUCT USED FOR UNKNOWN INDICATION
     Dosage: 30 MG, UNK
     Route: 065
     Dates: start: 20100730
  2. DIHYDROCODEINE TABLETS [Suspect]
     Indication: BACK PAIN
     Dosage: 30 MG,  1 TO 2 TDS.
     Route: 065
     Dates: start: 20090923
  3. LANSOPRAZOLE 30 MG GASTRO-RESISTANT CAPSULES [Suspect]
     Indication: PRODUCT USED FOR UNKNOWN INDICATION
     Dosage: 30 MG, UNK
     Route: 065
     Dates: start: 20100730
  4. PROPRANOLOL [Suspect]
     Indication: PRODUCT USED FOR UNKNOWN INDICATION
     Dosage: 10 MG
     Route: 065
     Dates: start: 20100730
  5. SERTRALINE 100MG TABLETS [Suspect]
     Indication: PRODUCT USED FOR UNKNOWN INDICATION
     Dosage: 100 MG, BID
     Route: 065
     Dates: start: 20100730
  6. LAMICTAL [Suspect]
     Indication: EPILEPSY
     Dosage: 400 MG, BID
     Route: 048
     Dates: start: 20040101
  7. NORETHISTERONE [Suspect]
     Indication: PRODUCT USED FOR UNKNOWN INDICATION
     Dosage: 350 UG, UNK
     Dates: start: 20090923
  8. AMOXICILLIN [Concomitant]
     Indication: PRODUCT USED FOR UNKNOWN INDICATION
     Dosage: 500 MG, TID
     Route: 065
     Dates: start: 20091023
  9. BETAMETHASONE SODIUM PHOSPHATE DROPS [Concomitant]
     Indication: PRODUCT USED FOR UNKNOWN INDICATION
     Dosage: 0.1 %, BID, TO EACH NOSTRIL.
     Route: 045
     Dates: start: 20090722
  10. CHLORAMPHENICOL [Concomitant]
     Indication: PRODUCT USED FOR UNKNOWN INDICATION
     Dosage: 0.5 %, QID
     Route: 047
     Dates: start: 20090722
  11. CLOBAZAM [Concomitant]
     Indication: PRODUCT USED FOR UNKNOWN INDICATION
     Dosage: 10 IM 1 TABLET TWICE DAILY FOR 1 WEEK THAN HALF A TABLET TWICE DAILY FOR 1 WEEK.
     Route: 065
     Dates: start: 20100702
  12. AMPICILLIN SODIUM/SULBACTAM SODIUM [Concomitant]
     Indication: PRODUCT USED FOR UNKNOWN INDICATION
     Dosage: 500/125 TABLETS, TDS
     Route: 065
     Dates: start: 20100326
  13. DICLOFENAC SODIUM [Concomitant]
     Indication: PRODUCT USED FOR UNKNOWN INDICATION
     Dosage: 75 MG, TID
     Route: 065
     Dates: start: 20100705
  14. FOLIC ACID [Concomitant]
     Indication: PRODUCT USED FOR UNKNOWN INDICATION
     Dosage: 5 MG, UNK
     Route: 065
     Dates: start: 20100730
  15. LACTULOSE [Concomitant]
     Indication: PRODUCT USED FOR UNKNOWN INDICATION
     Dosage: 3.35 G/5 ML , 5-10 ML, DAILY.
     Route: 065
     Dates: start: 20090506
  16. LIDOCAINE [Concomitant]
     Indication: PRODUCT USED FOR UNKNOWN INDICATION
     Dosage: 5 %, PRN, 10 PATCH
     Route: 065
     Dates: start: 20100604
  17. MICONAZOLE [Concomitant]
     Indication: PROPHYLAXIS
     Dosage: 2 %,
     Route: 061
     Dates: start: 20100517
  18. TPN [Concomitant]
     Indication: PRODUCT USED FOR UNKNOWN INDICATION
     Dosage: UNK
     Route: 065
  19. OMEPRAZOLE [Concomitant]
     Indication: PRODUCT USED FOR UNKNOWN INDICATION
     Dosage: 20 MG, QD
     Route: 065
  20. PROCHLORPERAZINE [Concomitant]
     Indication: NAUSEA
     Dosage: 5 MG, PRN
     Route: 065
     Dates: start: 20091221

REACTIONS (5)
  - CHOLESTASIS OF PREGNANCY [None]
  - CONVULSION [None]
  - DRUG EXPOSURE DURING PREGNANCY [None]
  - LIVE BIRTH [None]
  - PREMATURE LABOUR [None]
